FAERS Safety Report 5988194-8 (Version None)
Quarter: 2008Q4

REPORT INFORMATION
  Report Type: 
  Country: None (occurrence: None)
  Receive Date: 20081204
  Receipt Date: 20081124
  Transmission Date: 20090506
  Serious: Yes (Other)
  Sender: FDA-Public Use
  Company Number: OSCN-PR-0811L-0637

PATIENT
  Age: 22 Year
  Sex: Female

DRUGS (8)
  1. OMNISCAN [Suspect]
     Indication: ABDOMINAL PAIN
     Dosage: 0.1 MMOL/KG, SINGLE DOSE; 0.1 MMOL/KG, SINGLE DOSE; 0.1MMOL/KG, SINGLE DOSE
  2. OMNISCAN [Suspect]
     Indication: HEADACHE
     Dosage: 0.1 MMOL/KG, SINGLE DOSE; 0.1 MMOL/KG, SINGLE DOSE; 0.1MMOL/KG, SINGLE DOSE
  3. OMNISCAN [Suspect]
     Indication: NAUSEA
     Dosage: 0.1 MMOL/KG, SINGLE DOSE; 0.1 MMOL/KG, SINGLE DOSE; 0.1MMOL/KG, SINGLE DOSE
  4. OMNISCAN [Suspect]
     Indication: VOMITING
     Dosage: 0.1 MMOL/KG, SINGLE DOSE; 0.1 MMOL/KG, SINGLE DOSE; 0.1MMOL/KG, SINGLE DOSE
  5. OMNISCAN [Suspect]
     Indication: ABDOMINAL PAIN
     Dosage: 0.1 MMOL/KG, SINGLE DOSE; 0.1 MMOL/KG, SINGLE DOSE; 0.1MMOL/KG, SINGLE DOSE
  6. OMNISCAN [Suspect]
     Indication: HEADACHE
     Dosage: 0.1 MMOL/KG, SINGLE DOSE; 0.1 MMOL/KG, SINGLE DOSE; 0.1MMOL/KG, SINGLE DOSE
  7. OMNISCAN [Suspect]
     Indication: NAUSEA
     Dosage: 0.1 MMOL/KG, SINGLE DOSE; 0.1 MMOL/KG, SINGLE DOSE; 0.1MMOL/KG, SINGLE DOSE
  8. OMNISCAN [Suspect]
     Indication: VOMITING
     Dosage: 0.1 MMOL/KG, SINGLE DOSE; 0.1 MMOL/KG, SINGLE DOSE; 0.1MMOL/KG, SINGLE DOSE

REACTIONS (2)
  - NEPHROGENIC SYSTEMIC FIBROSIS [None]
  - SEPTIC SHOCK [None]
